FAERS Safety Report 7510348-X (Version None)
Quarter: 2011Q2

REPORT INFORMATION
  Report Type: 
  Country: None (occurrence: None)
  Receive Date: 20110527
  Receipt Date: 20110526
  Transmission Date: 20111010
  Serious: Yes (Other)
  Sender: FDA-Public Use
  Company Number: DE-ALLERGAN-1106072US

PATIENT
  Age: 75 Year
  Sex: Male

DRUGS (3)
  1. FLOXAL                             /00731801/ [Concomitant]
     Indication: PROPHYLAXIS
     Dosage: UNK
     Route: 047
  2. TRAVATAN [Concomitant]
     Dosage: 1 GTT, QD
     Route: 047
  3. OZURDEX [Suspect]
     Indication: MACULAR OEDEMA
     Dosage: UNK
     Dates: start: 20101110, end: 20101110

REACTIONS (4)
  - ENDOPHTHALMITIS [None]
  - VITREOUS DISORDER [None]
  - HYPOPYON [None]
  - INTRAOCULAR PRESSURE INCREASED [None]
